FAERS Safety Report 8099319-5 (Version None)
Quarter: 2012Q1

REPORT INFORMATION
  Report Type: 
  Country: None (occurrence: None)
  Receive Date: 20120131
  Receipt Date: 20120123
  Transmission Date: 20120608
  Serious: Yes (Hospitalization)
  Sender: FDA-Public Use
  Company Number: US-PFIZER INC-2010104258

PATIENT
  Sex: Male
  Weight: 77.5 kg

DRUGS (24)
  1. ACETAMINOPHEN AND OXYCODONE HCL [Concomitant]
     Indication: BREAKTHROUGH PAIN
     Dosage: 5/325MG, 1-2 TAB, 4-6HS PRN
     Route: 048
     Dates: start: 20080312
  2. FISH OIL [Concomitant]
     Indication: MEDICAL DIET
     Dosage: 1000 MG, 2X/DAY
     Route: 048
     Dates: start: 20080910
  3. MUCINEX [Concomitant]
     Indication: SINUS OPERATION
     Dosage: 300 MG, 2X/DAY
     Route: 048
     Dates: start: 20100304
  4. ONDANSETRON HCL [Concomitant]
     Indication: NAUSEA
     Dosage: 8 MG, TID, PRN
     Route: 048
     Dates: start: 20090624
  5. METHYLDOPA [Concomitant]
     Indication: COUGH
     Dosage: Q6HS, PRN
     Route: 048
     Dates: start: 20100308
  6. MS CONTIN [Concomitant]
     Indication: PAIN
     Dosage: 15 MG, 2X/DAY
     Route: 048
     Dates: start: 20081111
  7. LASIX [Concomitant]
     Indication: OEDEMA
     Dosage: 40 MG, 1X/DAY
     Route: 048
     Dates: start: 20090911
  8. MUCINEX [Concomitant]
     Indication: COUGH
  9. PLACEBO [Suspect]
     Indication: PROSTATE CANCER
     Dosage: UNK
     Route: 048
     Dates: start: 20091118, end: 20100803
  10. SPIRONOLACTONE [Concomitant]
     Indication: OEDEMA
     Dosage: 25 MG, 3X/DAY
     Route: 048
     Dates: start: 20090902
  11. COREG [Concomitant]
     Indication: HYPERTENSION
     Dosage: 3.125 MG, 1X/DAY
     Route: 048
     Dates: start: 20080703
  12. ALBUTEROL [Concomitant]
     Indication: COUGH
     Dosage: 0.83%,25/3MG/ML, 2X/DAY
     Route: 055
     Dates: start: 20100304
  13. AMITRIPTYLINE [Concomitant]
     Indication: NEUROPATHY PERIPHERAL
     Dosage: 10 MG, QHS
     Route: 048
     Dates: start: 20100224
  14. ONDANSETRON HCL [Concomitant]
     Indication: VOMITING
  15. LORAZEPAM [Concomitant]
     Indication: INSOMNIA
     Dosage: 1TAB, QHS
     Route: 048
     Dates: start: 20080311
  16. COLACE [Concomitant]
     Dosage: 100 MG, 3X/DAY
     Route: 048
     Dates: start: 20100809
  17. LEXAPRO [Concomitant]
     Indication: ANXIETY
     Dosage: 10 MG, 1X/DAY
     Route: 048
     Dates: start: 20080703
  18. FLORADIX [Concomitant]
     Indication: MEDICAL DIET
     Dosage: 375 MG, 1X/DAY
     Route: 048
     Dates: start: 20090902
  19. COLACE [Concomitant]
     Indication: CONSTIPATION
     Dosage: 100 MG, 2X/DAY
     Route: 048
     Dates: start: 20100722, end: 20100808
  20. SENNA [Concomitant]
     Indication: CONSTIPATION
     Dosage: 81 MG, 3X/DAY
     Route: 048
     Dates: start: 20100809
  21. PREDNISONE TAB [Suspect]
     Indication: PROSTATE CANCER
     Dosage: 5 MG, 2X/DAY
     Route: 048
     Dates: start: 20091118, end: 20100803
  22. REMERON [Concomitant]
     Indication: INSOMNIA
     Dosage: 30 MG, QHS
     Route: 048
     Dates: start: 20080822
  23. LEVAQUIN [Concomitant]
     Indication: PNEUMONIA
     Dosage: 500 MG, QDX14
     Route: 048
     Dates: start: 20100308
  24. TAMSULOSIN [Concomitant]
     Indication: POLYURIA
     Dosage: 0.4 MG, 1X/DAY
     Route: 048
     Dates: start: 20100224

REACTIONS (1)
  - DISSEMINATED INTRAVASCULAR COAGULATION [None]
